FAERS Safety Report 6001714-2 (Version None)
Quarter: 2008Q4

REPORT INFORMATION
  Report Type: 
  Country: None (occurrence: None)
  Receive Date: 20081215
  Receipt Date: 20081202
  Transmission Date: 20090506
  Serious: No
  Sender: FDA-Public Use
  Company Number: US-B.I. PHARMACEUTICALS,INC./RIDGEFIELD-2008-BP-17173BP

PATIENT
  Age: 56 Year
  Sex: Female

DRUGS (16)
  1. MIRAPEX [Suspect]
     Indication: RESTLESS LEGS SYNDROME
     Dosage: 1.75MG
     Route: 048
     Dates: start: 20070101
  2. METFORMIN HCL [Concomitant]
     Indication: DIABETES MELLITUS
     Dosage: 2000MG
  3. SEREVENT [Concomitant]
  4. FLOVENT [Concomitant]
     Route: 055
  5. ALBUTEROL [Concomitant]
  6. TRAMADOL HCL [Concomitant]
     Dosage: 150MG
  7. TOPROL-XL [Concomitant]
     Dosage: 50MG
     Route: 048
  8. HYZAAR [Concomitant]
  9. TRIAM/HZT [Concomitant]
  10. SINGULAIR [Concomitant]
     Dosage: 10MG
  11. LYRICA [Concomitant]
  12. METANX [Concomitant]
  13. CLONAZEPAM [Concomitant]
     Dosage: 1MG
  14. GLIMEPIRIDE [Concomitant]
     Dosage: 1MG
  15. LIPITOR [Concomitant]
     Dosage: 20MG
  16. LISINOPRIL [Concomitant]
     Dosage: 20MG
     Dates: end: 20080514

REACTIONS (1)
  - INSOMNIA [None]
